FAERS Safety Report 14556064 (Version 2)
Quarter: 2019Q1

REPORT INFORMATION
  Report Type: Spontaneous
  Country: IT (occurrence: IT)
  Receive Date: 20180221
  Receipt Date: 20190313
  Transmission Date: 20190417
  Serious: Yes (Hospitalization, Other)
  Sender: FDA-Public Use
  Company Number: IT-ROCHE-2074554

PATIENT
  Age: 67 Year
  Sex: Female

DRUGS (7)
  1. TACROLIMUS. [Suspect]
     Active Substance: TACROLIMUS
     Dosage: (LEVELS: 5-6 NG/ML)
     Route: 065
  2. TACROLIMUS. [Suspect]
     Active Substance: TACROLIMUS
     Indication: RENAL TRANSPLANT
     Route: 065
  3. MYCOPHENOLATE MOFETIL. [Suspect]
     Active Substance: MYCOPHENOLATE MOFETIL
     Indication: RENAL TRANSPLANT
     Route: 065
  4. PENTAMIDINE ISETHIONATE. [Concomitant]
     Active Substance: PENTAMIDINE ISETHIONATE
     Indication: ANTIFUNGAL PROPHYLAXIS
     Dosage: UNK UNK, UNKNOWN FREQ.
     Route: 065
  5. METHYLPREDNISOLONE. [Suspect]
     Active Substance: METHYLPREDNISOLONE
     Indication: RENAL TRANSPLANT
     Route: 065
  6. BASILIXIMAB [Concomitant]
     Active Substance: BASILIXIMAB
     Indication: RENAL TRANSPLANT
     Dosage: UNK UNK, UNKNOWN FREQ.
     Route: 065
  7. METHYLPREDNISOLONE. [Suspect]
     Active Substance: METHYLPREDNISOLONE
     Indication: RENAL TRANSPLANT
     Route: 065

REACTIONS (7)
  - Atrial fibrillation [Unknown]
  - Diabetes mellitus [Unknown]
  - Malacoplakia gastrointestinal [Recovered/Resolved]
  - Rhodococcus infection [Recovered/Resolved]
  - Malacoplakia [Recovered/Resolved]
  - Delayed graft function [Unknown]
  - Pneumonia bacterial [Recovered/Resolved]
